FAERS Safety Report 11552516 (Version 3)
Quarter: 2015Q4

REPORT INFORMATION
  Report Type: Spontaneous
  Country: US (occurrence: US)
  Receive Date: 20150925
  Receipt Date: 20151103
  Transmission Date: 20160304
  Serious: No
  Sender: FDA-Public Use
  Company Number: US-BAYER-2015-425096

PATIENT
  Sex: Female

DRUGS (1)
  1. ADALAT CC [Suspect]
     Active Substance: NIFEDIPINE
     Dosage: UNK

REACTIONS (8)
  - Cough [None]
  - Product solubility abnormal [None]
  - Blood glucose increased [None]
  - Blood pressure increased [None]
  - Palpitations [None]
  - Adverse reaction [None]
  - Dyspnoea [None]
  - Fatigue [None]
